FAERS Safety Report 9450138 (Version 1)
Quarter: 2013Q3

REPORT INFORMATION
  Report Type: Spontaneous
  Country: US (occurrence: US)
  Receive Date: 20130809
  Receipt Date: 20130809
  Transmission Date: 20140515
  Serious: No
  Sender: FDA-Public Use
  Company Number: US-GLAXOSMITHKLINE-A0886134A

PATIENT
  Age: 57 Year
  Sex: Male

DRUGS (8)
  1. REQUIP XL [Suspect]
     Indication: PARKINSON^S DISEASE
     Dosage: 36MG PER DAY
     Route: 048
     Dates: start: 201006
  2. HYDROCODONE APAP [Concomitant]
  3. UNSPECIFIED MEDICATION [Concomitant]
  4. PROPOXYPHENE + APAP [Concomitant]
  5. SYNTHROID [Concomitant]
  6. ALLOPURINOL [Concomitant]
  7. CARBIDOPA/LEVODOPA [Concomitant]
  8. PAIN MEDICATION [Concomitant]

REACTIONS (5)
  - Nausea [Unknown]
  - Initial insomnia [Unknown]
  - Vomiting [Unknown]
  - Tremor [Not Recovered/Not Resolved]
  - Drug administration error [Unknown]
